FAERS Safety Report 8274809-0 (Version None)
Quarter: 2012Q2

REPORT INFORMATION
  Report Type: 
  Country: None (occurrence: None)
  Receive Date: 20120411
  Receipt Date: 20120410
  Transmission Date: 20120825
  Serious: Yes (Other)
  Sender: FDA-Public Use
  Company Number: US-JNJFOC-20120313201

PATIENT
  Age: 13 Year
  Sex: Male
  Weight: 48.54 kg

DRUGS (5)
  1. NASACORT SPRAY [Concomitant]
     Indication: ASTHMA
     Route: 065
  2. PULMICORT [Concomitant]
     Indication: ASTHMA
     Route: 065
  3. ZYRTEC [Suspect]
     Route: 048
  4. ZYRTEC [Suspect]
     Indication: MULTIPLE ALLERGIES
     Route: 048
  5. NASACORT SPRAY [Concomitant]
     Indication: MULTIPLE ALLERGIES
     Route: 065

REACTIONS (1)
  - PSORIASIS [None]
